FAERS Safety Report 8260802 (Version 2)
Quarter: 2014Q1

REPORT INFORMATION
  Report Type: Spontaneous
  Country: US (occurrence: US)
  Receive Date: 20111123
  Receipt Date: 20140124
  Transmission Date: 20141002
  Serious: No
  Sender: FDA-Public Use
  Company Number: US-JNJFOC-20111106551

PATIENT
  Sex: Male

DRUGS (2)
  1. DURAGESIC [Suspect]
     Indication: PAIN
     Route: 062
     Dates: start: 2009
  2. DURAGESIC [Suspect]
     Indication: PAIN
     Route: 062

REACTIONS (4)
  - Hyperhidrosis [Unknown]
  - Wrong technique in drug usage process [Not Recovered/Not Resolved]
  - Drug ineffective [Not Recovered/Not Resolved]
  - Product adhesion issue [Unknown]
